FAERS Safety Report 18726056 (Version 1)
Quarter: 2021Q1

REPORT INFORMATION
  Report Type: Spontaneous
  Country: PL (occurrence: PL)
  Receive Date: 20210111
  Receipt Date: 20210111
  Transmission Date: 20210419
  Serious: Yes (Life-Threatening)
  Sender: FDA-Public Use
  Company Number: PL-TEVA-2021-PL-1866751

PATIENT
  Age: 34 Year
  Sex: Female
  Weight: 49.2 kg

DRUGS (2)
  1. PACLITAXEL. [Suspect]
     Active Substance: PACLITAXEL
     Indication: BREAST CANCER
     Dosage: 80MG/M2
     Route: 042
     Dates: start: 20171109, end: 20171109
  2. ONDANSETRON [Concomitant]
     Active Substance: ONDANSETRON
     Indication: BREAST CANCER
     Dosage: 8MG
     Route: 042
     Dates: start: 20171109, end: 20171109

REACTIONS (10)
  - Swelling face [Recovered/Resolved]
  - Dyspnoea [Recovered/Resolved]
  - Conjunctival hyperaemia [Recovered/Resolved]
  - Erythema [Recovered/Resolved]
  - Conjunctival oedema [Recovered/Resolved]
  - Palpitations [Recovered/Resolved]
  - Anxiety [Recovered/Resolved]
  - Tachycardia [Recovered/Resolved]
  - Skin swelling [Recovered/Resolved]
  - Tachypnoea [Recovered/Resolved]

NARRATIVE: CASE EVENT DATE: 20171109
